FAERS Safety Report 8487047-3 (Version None)
Quarter: 2012Q3

REPORT INFORMATION
  Report Type: 
  Country: None (occurrence: None)
  Receive Date: 20120704
  Receipt Date: 20120627
  Transmission Date: 20120928
  Serious: Yes (Hospitalization, Other)
  Sender: FDA-Public Use
  Company Number: PHHY2012BR056333

PATIENT
  Sex: Male
  Weight: 53 kg

DRUGS (10)
  1. ACETYLCYSTEINE [Suspect]
     Dosage: 600 MG, QD
     Dates: start: 20110101
  2. VERAPAMIL [Concomitant]
     Indication: HYPERTENSION
  3. ACETYLCYSTEINE [Suspect]
     Indication: EMPHYSEMA
     Dosage: 200 MG, QD
  4. ASPIRIN [Concomitant]
     Dosage: 1 DF, QD
     Route: 048
  5. LOSARTAN POTASSIUM [Concomitant]
     Indication: HYPERTENSION
     Dosage: 1 DF, QD
  6. LOSARTAN POTASSIUM [Concomitant]
     Dosage: 0.5 DF, QHS
  7. VERAPAMIL [Concomitant]
     Indication: ARRHYTHMIA
     Dosage: 2 DF, QD
     Route: 048
  8. CLOPIDOGREL BISULFATE [Concomitant]
     Indication: COAGULOPATHY
     Dosage: 1 DF, QD
     Route: 048
  9. FORMOTEROL FUMARATE [Suspect]
     Indication: EMPHYSEMA
     Dosage: 1 DF, BID
  10. SIMVASTATIN [Concomitant]
     Indication: BLOOD CHOLESTEROL
     Dosage: 1 DF, QD
     Route: 048
     Dates: start: 20120101

REACTIONS (11)
  - DYSPNOEA [None]
  - HYPERTENSION [None]
  - HYPOTENSION [None]
  - CARDIAC DISORDER [None]
  - WRONG TECHNIQUE IN DRUG USAGE PROCESS [None]
  - MYOCARDIAL INFARCTION [None]
  - GASTROINTESTINAL DISORDER [None]
  - DRUG INEFFECTIVE [None]
  - CHEST PAIN [None]
  - FALL [None]
  - MALAISE [None]
